FAERS Safety Report 18612753 (Version 2)
Quarter: 2025Q3

REPORT INFORMATION
  Report Type: Spontaneous
  Country: EU (occurrence: EU)
  Receive Date: 20201214
  Receipt Date: 20250718
  Transmission Date: 20251020
  Serious: Yes (Other)
  Sender: MYLAN
  Company Number: EU-SUN PHARMACEUTICAL INDUSTRIES LTD-2020R1-268464

PATIENT
  Age: 78 Year
  Sex: Male
  Weight: 77 kg

DRUGS (6)
  1. VORICONAZOLE [Suspect]
     Active Substance: VORICONAZOLE
     Indication: Infective spondylitis
     Dosage: 200 MILLIGRAM, BID (200 MG/TWICE DAILY), 400 MILLIGRAM, QD
  2. AMPHOTERICIN B [Concomitant]
     Active Substance: AMPHOTERICIN B
     Indication: Spondylitis
  3. AMPHOTERICIN B [Concomitant]
     Active Substance: AMPHOTERICIN B
  4. ANIDULAFUNGIN [Concomitant]
     Active Substance: ANIDULAFUNGIN
     Indication: Candida infection
  5. FLUCLOXACILLIN [Concomitant]
     Active Substance: FLUCLOXACILLIN
     Indication: Product used for unknown indication
     Dosage: 6000 MILLIGRAM, QD (6000 MG/24 H)
  6. MICAFUNGIN [Concomitant]
     Active Substance: MICAFUNGIN SODIUM
     Indication: Product used for unknown indication

REACTIONS (4)
  - Muscle spasms [Unknown]
  - Therapeutic product effect incomplete [Unknown]
  - Condition aggravated [Unknown]
  - Drug ineffective [Unknown]
